FAERS Safety Report 6814818-9 (Version None)
Quarter: 2010Q3

REPORT INFORMATION
  Report Type: 
  Country: None (occurrence: None)
  Receive Date: 20100702
  Receipt Date: 20100629
  Transmission Date: 20110219
  Serious: Yes (Hospitalization, Disabling)
  Sender: FDA-Public Use
  Company Number: A0867955A

PATIENT
  Age: 47 Year
  Sex: Female

DRUGS (1)
  1. AVANDIA [Suspect]
     Dosage: 8MG PER DAY
     Route: 048
     Dates: start: 20020101, end: 20070101

REACTIONS (4)
  - BLINDNESS [None]
  - CARDIAC FAILURE CONGESTIVE [None]
  - FRACTURE [None]
  - VISUAL IMPAIRMENT [None]
